FAERS Safety Report 15834573 (Version 19)
Quarter: 2019Q3

REPORT INFORMATION
  Report Type: Report from Study
  Country: US (occurrence: US)
  Receive Date: 20190116
  Receipt Date: 20190926
  Transmission Date: 20191004
  Serious: Yes (Hospitalization)
  Sender: FDA-Public Use
  Company Number: US-ACTELION-A-NJ2018-183541

PATIENT
  Age: 45 Year
  Sex: Male
  Weight: 68.93 kg

DRUGS (18)
  1. PREDNISONE. [Concomitant]
     Active Substance: PREDNISONE
     Dosage: UNK
  2. LASIX [Concomitant]
     Active Substance: FUROSEMIDE
     Dosage: UNK
  3. PROTONIX [Concomitant]
     Active Substance: PANTOPRAZOLE SODIUM
     Dosage: UNK
  4. CLARITIN [Concomitant]
     Active Substance: LORATADINE
     Dosage: UNK
  5. FLONASE [Concomitant]
     Active Substance: FLUTICASONE PROPIONATE
     Dosage: UNK
  6. SAMSCA [Concomitant]
     Active Substance: TOLVAPTAN
     Dosage: UNK
  7. VELETRI [Suspect]
     Active Substance: EPOPROSTENOL
     Dosage: 8 NG/KG, PER MIN
     Route: 042
  8. ATROVENT [Concomitant]
     Active Substance: IPRATROPIUM BROMIDE
     Dosage: UNK
  9. VELETRI [Suspect]
     Active Substance: EPOPROSTENOL
     Dosage: 18 NG/KG, PER MIN
     Route: 042
  10. BACTRIM [Concomitant]
     Active Substance: SULFAMETHOXAZOLE\TRIMETHOPRIM
     Dosage: UNK
  11. ALDACTONE [Concomitant]
     Active Substance: SPIRONOLACTONE
     Dosage: UNK
  12. DIGOXIN. [Concomitant]
     Active Substance: DIGOXIN
     Dosage: UNK
  13. VELETRI [Suspect]
     Active Substance: EPOPROSTENOL
     Indication: PULMONARY HYPERTENSION
     Dosage: 16.5 NG/KG, PER MIN
     Route: 042
  14. VELETRI [Suspect]
     Active Substance: EPOPROSTENOL
     Dosage: 10.5 NG/KG, PER MIN
     Route: 042
  15. VELETRI [Suspect]
     Active Substance: EPOPROSTENOL
     Dosage: 22 NG/KG, PER MIN
     Route: 042
  16. KEPPRA [Concomitant]
     Active Substance: LEVETIRACETAM
     Dosage: UNK
  17. BUMEX [Concomitant]
     Active Substance: BUMETANIDE
     Dosage: UNK
  18. SILDENAFIL. [Concomitant]
     Active Substance: SILDENAFIL
     Dosage: UNK

REACTIONS (29)
  - Corona virus infection [Recovered/Resolved]
  - Brain abscess [Recovered/Resolved]
  - Headache [Recovered/Resolved]
  - Therapy change [Recovered/Resolved]
  - Central nervous system infection [Unknown]
  - Fluid overload [Unknown]
  - Oedema peripheral [Recovered/Resolved]
  - Localised oedema [Recovered/Resolved]
  - Cardiac failure [Recovered/Resolved]
  - Tooth extraction [Unknown]
  - Rhinorrhoea [Recovered/Resolved]
  - Biopsy brain [Recovered/Resolved]
  - Hemiparesis [Recovering/Resolving]
  - Cerebrovascular accident [Unknown]
  - Pulmonary hypertension [Unknown]
  - Brain natriuretic peptide increased [Recovered/Resolved]
  - Central nervous system lesion [Not Recovered/Not Resolved]
  - Mental status changes [Recovering/Resolving]
  - Palpitations [Recovered/Resolved]
  - Nocardiosis [Recovered/Resolved]
  - Dyspnoea [Recovered/Resolved]
  - Tooth infection [Recovering/Resolving]
  - Rhinalgia [Unknown]
  - Nasal discomfort [Unknown]
  - Right ventricular failure [Recovered/Resolved]
  - Peripheral swelling [Recovered/Resolved]
  - Pain in jaw [Unknown]
  - Surgery [Unknown]
  - Unevaluable event [Recovered/Resolved]

NARRATIVE: CASE EVENT DATE: 20190228
